FAERS Safety Report 14061927 (Version 1)
Quarter: 2017Q4

REPORT INFORMATION
  Report Type: Spontaneous
  Country: US (occurrence: US)
  Receive Date: 20171009
  Receipt Date: 20171009
  Transmission Date: 20180321
  Serious: Yes (Hospitalization, Other)
  Sender: FDA-Public Use
  Company Number: US-SUN PHARMACEUTICAL INDUSTRIES LTD-2017US-144066

PATIENT
  Age: 80 Year
  Sex: Male

DRUGS (1)
  1. FERROUS SULFATE. [Suspect]
     Active Substance: FERROUS SULFATE
     Indication: IRON DEFICIENCY ANAEMIA
     Route: 048

REACTIONS (3)
  - Pneumonia [Recovered/Resolved]
  - Foreign body aspiration [Recovered/Resolved]
  - Cough [Recovered/Resolved]
